FAERS Safety Report 8501564-9 (Version None)
Quarter: 2012Q3

REPORT INFORMATION
  Report Type: 
  Country: None (occurrence: None)
  Receive Date: 20120710
  Receipt Date: 20120625
  Transmission Date: 20120928
  Serious: Yes (Other)
  Sender: FDA-Public Use
  Company Number: CHPA2012US014044

PATIENT
  Sex: Female

DRUGS (1)
  1. MAALOX ANTACID/ANTIGAS RS LIQ COOL MINT [Suspect]
     Indication: CONSTIPATION PROPHYLAXIS
     Dosage: 3 TSP, TID
     Route: 048
     Dates: start: 20020101

REACTIONS (3)
  - OFF LABEL USE [None]
  - ASTHMA [None]
  - INCORRECT DRUG ADMINISTRATION DURATION [None]
